FAERS Safety Report 10429559 (Version 1)
Quarter: 2014Q3

REPORT INFORMATION
  Report Type: Spontaneous
  Country: FR (occurrence: FR)
  Receive Date: 20140904
  Receipt Date: 20140904
  Transmission Date: 20150326
  Serious: No
  Sender: FDA-Public Use
  Company Number: FR-JNJFOC-20140821506

PATIENT
  Age: 20 Year
  Sex: Female

DRUGS (1)
  1. DUROGESIC [Suspect]
     Active Substance: FENTANYL
     Indication: PRODUCT USED FOR UNKNOWN INDICATION
     Dosage: 75 UG/HR + HALF PATCH OF 25 UG/HR
     Route: 062
     Dates: start: 20140820

REACTIONS (2)
  - Drug administration error [Unknown]
  - Drug prescribing error [Unknown]
